FAERS Safety Report 5334589-5 (Version None)
Quarter: 2007Q2

REPORT INFORMATION
  Report Type: 
  Country: None (occurrence: None)
  Receive Date: 20070525
  Receipt Date: 20070521
  Transmission Date: 20071010
  Serious: Yes (Hospitalization, Other)
  Sender: FDA-Public Use
  Company Number: BW-BRISTOL-MYERS SQUIBB COMPANY-13791215

PATIENT
  Age: 54 Year
  Sex: Female

DRUGS (3)
  1. EFAVIRENZ [Suspect]
  2. SAQUINAVIR [Suspect]
  3. RITONAVIR [Suspect]

REACTIONS (1)
  - PARAPARESIS [None]
